FAERS Safety Report 9632854 (Version 1)
Quarter: 2013Q4

REPORT INFORMATION
  Report Type: Report from Study
  Country: AU (occurrence: AU)
  Receive Date: 20131018
  Receipt Date: 20131018
  Transmission Date: 20140711
  Serious: Yes (Other)
  Sender: FDA-Public Use
  Company Number: PHHY2013AU116617

PATIENT
  Age: 63 Year
  Sex: Female

DRUGS (2)
  1. CLOZARIL [Suspect]
     Dosage: 150 MG
     Dates: start: 19931125
  2. CLOZARIL [Suspect]
     Dosage: 150 MG
     Dates: start: 20131014

REACTIONS (3)
  - Breast cancer [Unknown]
  - Neutropenia [Unknown]
  - White blood cell count decreased [Unknown]
